FAERS Safety Report 6387972-3 (Version None)
Quarter: 2009Q4

REPORT INFORMATION
  Report Type: 
  Country: None (occurrence: None)
  Receive Date: 20091005
  Receipt Date: 20090925
  Transmission Date: 20100525
  Serious: Yes (Hospitalization, Other)
  Sender: FDA-Public Use
  Company Number: ES-ABBOTT-09P-144-0599024-00

PATIENT
  Age: 33 Year
  Sex: Female

DRUGS (3)
  1. HUMIRA [Suspect]
     Indication: CROHN'S DISEASE
     Dates: start: 20080501, end: 20080901
  2. HUMIRA [Suspect]
     Dates: start: 20080901, end: 20090901
  3. HUMIRA [Suspect]
     Dates: start: 20090901

REACTIONS (5)
  - ANAL FISTULA [None]
  - ANTINUCLEAR ANTIBODY POSITIVE [None]
  - ARTHRALGIA [None]
  - MUSCLE RIGIDITY [None]
  - RED BLOOD CELL SEDIMENTATION RATE INCREASED [None]
